FAERS Safety Report 21808557 (Version 1)
Quarter: 2023Q1

REPORT INFORMATION
  Report Type: Report from Study
  Country: CA (occurrence: CA)
  Receive Date: 20230103
  Receipt Date: 20230103
  Transmission Date: 20230418
  Serious: Yes (Hospitalization, Other)
  Sender: FDA-Public Use
  Company Number: CA-JNJFOC-20221262798

PATIENT
  Age: 69 Year
  Sex: Male
  Weight: 124 kg

DRUGS (1)
  1. REMICADE [Suspect]
     Active Substance: INFLIXIMAB
     Indication: Crohn^s disease
     Route: 041
     Dates: start: 20180307

REACTIONS (10)
  - Hospitalisation [Unknown]
  - Oxygen saturation decreased [Unknown]
  - Inadequate diet [Unknown]
  - Weight decreased [Unknown]
  - Tremor [Unknown]
  - Pallor [Unknown]
  - Asthenia [Unknown]
  - Vomiting [Unknown]
  - Nausea [Unknown]
  - SARS-CoV-2 test positive [Unknown]

NARRATIVE: CASE EVENT DATE: 20220101
